FAERS Safety Report 11617277 (Version 1)
Quarter: 2015Q4

REPORT INFORMATION
  Report Type: Spontaneous
  Country: CH (occurrence: CH)
  Receive Date: 20151009
  Receipt Date: 20151009
  Transmission Date: 20160304
  Serious: Yes (Other)
  Sender: FDA-Public Use
  Company Number: CH-JNJFOC-20151000545

PATIENT
  Age: 69 Year
  Sex: Male

DRUGS (11)
  1. IMBRUVICA [Suspect]
     Active Substance: IBRUTINIB
     Indication: CHRONIC LYMPHOCYTIC LEUKAEMIA
     Route: 048
     Dates: start: 20150107, end: 20150121
  2. VFEND [Suspect]
     Active Substance: VORICONAZOLE
     Indication: ASPERGILLUS INFECTION
     Dosage: 1-0-1
     Route: 048
     Dates: start: 20140929, end: 20150325
  3. VFEND [Suspect]
     Active Substance: VORICONAZOLE
     Indication: ASPERGILLUS INFECTION
     Dosage: 1-0-1
     Route: 048
     Dates: start: 20150519, end: 20150724
  4. IMBRUVICA [Suspect]
     Active Substance: IBRUTINIB
     Indication: CHRONIC LYMPHOCYTIC LEUKAEMIA
     Route: 048
     Dates: start: 20150121, end: 20150723
  5. IMBRUVICA [Suspect]
     Active Substance: IBRUTINIB
     Indication: CHRONIC LYMPHOCYTIC LEUKAEMIA
     Route: 048
     Dates: start: 20150724
  6. VFEND [Suspect]
     Active Substance: VORICONAZOLE
     Indication: ASPERGILLUS INFECTION
     Route: 048
     Dates: start: 20140923, end: 20140928
  7. VFEND [Suspect]
     Active Substance: VORICONAZOLE
     Indication: ASPERGILLUS INFECTION
     Dosage: 1.5-0-1
     Route: 048
     Dates: start: 20150421, end: 20150519
  8. BACTRIM [Concomitant]
     Active Substance: SULFAMETHOXAZOLE\TRIMETHOPRIM
     Dosage: 160/800 MG
     Route: 048
  9. NEXIUM [Concomitant]
     Active Substance: ESOMEPRAZOLE MAGNESIUM
     Indication: PRODUCT USED FOR UNKNOWN INDICATION
     Route: 048
  10. VFEND [Suspect]
     Active Substance: VORICONAZOLE
     Indication: ASPERGILLUS INFECTION
     Dosage: 1-0-1
     Route: 048
     Dates: start: 20150325, end: 20150421
  11. DAFALGAN [Concomitant]
     Active Substance: ACETAMINOPHEN
     Dosage: AS REQUIRED
     Route: 048

REACTIONS (7)
  - Drug interaction [Recovered/Resolved]
  - Face oedema [Recovering/Resolving]
  - Photosensitivity reaction [Recovering/Resolving]
  - Skin fissures [Recovering/Resolving]
  - Erythema [Recovering/Resolving]
  - Oedema peripheral [Recovering/Resolving]
  - Blister [Recovering/Resolving]

NARRATIVE: CASE EVENT DATE: 20150106
